FAERS Safety Report 17271053 (Version 1)
Quarter: 2020Q1

REPORT INFORMATION
  Report Type: Spontaneous
  Country: US (occurrence: US)
  Receive Date: 20200115
  Receipt Date: 20200115
  Transmission Date: 20200409
  Serious: No
  Sender: FDA-Public Use
  Company Number: US-009507513-1912USA009507

PATIENT
  Sex: Male

DRUGS (1)
  1. KEYTRUDA [Suspect]
     Active Substance: PEMBROLIZUMAB
     Indication: GLIOBLASTOMA MULTIFORME
     Dosage: UNK

REACTIONS (2)
  - No adverse event [Unknown]
  - Product use in unapproved indication [Unknown]
